FAERS Safety Report 7290361-0 (Version None)
Quarter: 2011Q1

REPORT INFORMATION
  Report Type: 
  Country: None (occurrence: None)
  Receive Date: 20110214
  Receipt Date: 20110203
  Transmission Date: 20110831
  Serious: Yes (Hospitalization)
  Sender: FDA-Public Use
  Company Number: FR-SANOFI-AVENTIS-2011SA007354

PATIENT
  Age: 77 Year
  Sex: Female

DRUGS (11)
  1. GLICLAZIDE [Concomitant]
     Route: 065
  2. FERROUS SULFATE TAB [Concomitant]
     Route: 065
  3. CLARITHROMYCIN [Concomitant]
     Route: 065
     Dates: start: 20101108, end: 20101129
  4. INDAPAMIDE [Suspect]
     Indication: HYPERTENSION
     Route: 048
     Dates: end: 20101127
  5. ASPIRIN [Concomitant]
     Route: 065
  6. NEBIVOLOL [Concomitant]
     Route: 065
  7. DISCOTRINE [Concomitant]
     Route: 065
  8. NITROGLYCERIN [Concomitant]
     Route: 065
  9. OMEPRAZOLE [Concomitant]
     Route: 065
  10. METFORMIN HYDROCHLORIDE [Concomitant]
     Route: 065
  11. AMOXICILLIN [Concomitant]
     Route: 065
     Dates: start: 20101108, end: 20101129

REACTIONS (2)
  - HYPONATRAEMIA [None]
  - HYPOGLYCAEMIA [None]
